FAERS Safety Report 18119757 (Version 1)
Quarter: 2020Q3

REPORT INFORMATION
  Report Type: Spontaneous
  Country: US (occurrence: US)
  Receive Date: 20200806
  Receipt Date: 20200806
  Transmission Date: 20201103
  Serious: Yes (Death, Hospitalization, Other)
  Sender: FDA-Public Use
  Company Number: US-PURDUE-USA-2020-0159839

PATIENT
  Sex: Female

DRUGS (2)
  1. OXYCODONE HYDROCHLORIDE (SIMILAR TO NDA 22?272) [Suspect]
     Active Substance: OXYCODONE HYDROCHLORIDE
     Indication: PAIN
     Dosage: 15 MG, UNK
     Route: 048
     Dates: start: 20151218
  2. OXYCODONE HYDROCHLORIDE (SIMILAR TO NDA 22?272) [Suspect]
     Active Substance: OXYCODONE HYDROCHLORIDE
     Indication: PAIN MANAGEMENT
     Dosage: 30 UNK, UNK
     Route: 048

REACTIONS (24)
  - Death [Fatal]
  - Surgical stapling [Unknown]
  - Paranoia [Unknown]
  - Medication error [Unknown]
  - Drug dependence [Unknown]
  - Pain [Unknown]
  - Somnolence [Unknown]
  - Screaming [Unknown]
  - Sluggishness [Unknown]
  - Agitation [Unknown]
  - Anger [Unknown]
  - Dysarthria [Unknown]
  - Head injury [Unknown]
  - Speech disorder [Unknown]
  - Hallucination [Unknown]
  - Multiple sclerosis [Unknown]
  - Cardiac disorder [Unknown]
  - Wound [Unknown]
  - Fall [Unknown]
  - Rib fracture [Unknown]
  - Road traffic accident [Unknown]
  - Delusion [Unknown]
  - Memory impairment [Unknown]
  - Aggression [Unknown]

NARRATIVE: CASE EVENT DATE: 2015
